FAERS Safety Report 15285425 (Version 1)
Quarter: 2018Q3

REPORT INFORMATION
  Report Type: Spontaneous
  Country: ES (occurrence: ES)
  Receive Date: 20180816
  Receipt Date: 20180816
  Transmission Date: 20181010
  Serious: Yes (Other)
  Sender: FDA-Public Use
  Company Number: ES-TEVA-2018-ES-941691

PATIENT
  Age: 59 Year
  Sex: Male

DRUGS (6)
  1. ESOMEPRAZOL (1172A) [Concomitant]
     Route: 048
  2. ZALDIAR 37,5 MG/325 MG COMPRIMIDOS RECUBIERTOS CON PELICULA , 60 COMPR [Concomitant]
     Route: 048
  3. OMNIC OCAS 0,4 MG COMPRIMIDOS DE LIBERACION PROLONGADA RECUBIERTOS CON [Concomitant]
     Dosage: .4 MILLIGRAM DAILY;
     Route: 048
  4. YURELAX 10 MG CAPSULAS DURAS , 30 C?PSULAS [Concomitant]
     Route: 048
  5. DULOXETINA (7421A) [Suspect]
     Active Substance: DULOXETINE
     Indication: INTERVERTEBRAL DISC PROTRUSION
     Dosage: 60 MILLIGRAM DAILY;
     Route: 048
     Dates: start: 20180115, end: 20180601
  6. FORMODUAL NEXTHALER 100 MICROGRAMOS/6 MICROGRAMOS INHALACION POLVO PAR [Concomitant]
     Route: 055

REACTIONS (2)
  - Prostatism [Recovered/Resolved]
  - Urinary retention [Recovered/Resolved]

NARRATIVE: CASE EVENT DATE: 20180402
